FAERS Safety Report 17653956 (Version 7)
Quarter: 2025Q2

REPORT INFORMATION
  Report Type: Report from Study
  Country: DE (occurrence: DE)
  Receive Date: 20200410
  Receipt Date: 20250418
  Transmission Date: 20250717
  Serious: Yes (Hospitalization)
  Sender: ROCHE
  Company Number: DE-ROCHE-2513863

PATIENT
  Age: 53 Year
  Sex: Male
  Weight: 90.0 kg

DRUGS (22)
  1. OCREVUS [Suspect]
     Active Substance: OCRELIZUMAB
     Indication: Relapsing multiple sclerosis
     Route: 042
     Dates: start: 20181115
  2. OCREVUS [Suspect]
     Active Substance: OCRELIZUMAB
     Route: 042
     Dates: start: 20180515, end: 20180529
  3. TAMSULOSIN [Concomitant]
     Active Substance: TAMSULOSIN
     Indication: Benign prostatic hyperplasia
     Dates: start: 201910
  4. PREDNISOLONE [Concomitant]
     Active Substance: PREDNISOLONE
     Indication: Prophylaxis
     Route: 042
     Dates: start: 20181115, end: 20181115
  5. PREDNISOLONE [Concomitant]
     Active Substance: PREDNISOLONE
     Indication: Prophylaxis
     Route: 042
     Dates: start: 20180529, end: 20180529
  6. EBASTINE [Concomitant]
     Active Substance: EBASTINE
     Indication: Prophylaxis
     Route: 048
     Dates: start: 20181114, end: 20181116
  7. EBASTINE [Concomitant]
     Active Substance: EBASTINE
     Indication: Prophylaxis
     Route: 048
     Dates: start: 20180528, end: 20180530
  8. EBASTINE [Concomitant]
     Active Substance: EBASTINE
     Indication: Prophylaxis
     Route: 048
     Dates: start: 20180514, end: 20180516
  9. SPASMEX (GERMANY) [Concomitant]
     Indication: Muscle spasticity
     Route: 048
     Dates: start: 201708
  10. CHOLECALCIFEROL [Concomitant]
     Active Substance: CHOLECALCIFEROL
     Route: 048
     Dates: start: 202012
  11. PHENOXYBENZAMINE HYDROCHLORIDE [Concomitant]
     Active Substance: PHENOXYBENZAMINE HYDROCHLORIDE
     Route: 048
     Dates: start: 20211223
  12. CYMBALTA [Concomitant]
     Active Substance: DULOXETINE HYDROCHLORIDE
     Indication: Affect lability
     Route: 048
     Dates: start: 20130916
  13. CYMBALTA [Concomitant]
     Active Substance: DULOXETINE HYDROCHLORIDE
     Route: 048
     Dates: start: 202012
  14. DULOXETINE [Concomitant]
     Active Substance: DULOXETINE
     Indication: Depression
     Route: 048
     Dates: start: 201910
  15. TIZANIDINE [Concomitant]
     Active Substance: TIZANIDINE
     Route: 048
     Dates: start: 20210119, end: 2022
  16. DALFAMPRIDINE [Concomitant]
     Active Substance: DALFAMPRIDINE
     Dosage: INDICATION: WORSENING OF DEFAECATION URGENCY
     Route: 048
     Dates: start: 20120105, end: 201910
  17. PREDNISOLONE [Concomitant]
     Active Substance: PREDNISOLONE
     Indication: Prophylaxis
     Route: 042
     Dates: start: 20180515, end: 20180515
  18. RANITIDINE [Concomitant]
     Active Substance: RANITIDINE
     Indication: Prophylaxis
     Route: 048
     Dates: start: 20180514, end: 20180516
  19. RANITIDINE [Concomitant]
     Active Substance: RANITIDINE
     Indication: Prophylaxis
     Route: 048
     Dates: start: 20181114, end: 20181116
  20. RANITIDINE [Concomitant]
     Active Substance: RANITIDINE
     Indication: Prophylaxis
     Route: 048
     Dates: start: 20180528, end: 20180530
  21. IBUPROFEN [Concomitant]
     Active Substance: IBUPROFEN
     Indication: Pain
     Route: 048
     Dates: start: 20110926
  22. BACLOFEN [Concomitant]
     Active Substance: BACLOFEN
     Indication: Muscle spasticity
     Route: 048
     Dates: start: 20110921

REACTIONS (6)
  - Urinary tract infection [Recovering/Resolving]
  - Orchitis [Recovered/Resolved]
  - Dysuria [Recovering/Resolving]
  - Epididymitis [Recovering/Resolving]
  - Urinary tract infection [Recovering/Resolving]
  - Micturition disorder [Recovered/Resolved]

NARRATIVE: CASE EVENT DATE: 20191216
